FAERS Safety Report 5423804-5 (Version None)
Quarter: 2007Q3

REPORT INFORMATION
  Report Type: 
  Country: None (occurrence: None)
  Receive Date: 20070727
  Receipt Date: 20060518
  Transmission Date: 20080115
  Serious: Yes (Hospitalization, Other)
  Sender: FDA-Public Use
  Company Number: THYM-10959

PATIENT
  Age: 66 Year
  Sex: Male
  Weight: 110.2241 kg

DRUGS (10)
  1. THYMOGLOBULIN [Suspect]
     Indication: RENAL TRANSPLANT
     Dosage: 125 MG QD IV
     Route: 042
     Dates: start: 20051013, end: 20051015
  2. PREDNISONE [Concomitant]
  3. TACROLIMUS [Concomitant]
  4. CELLCEPT [Concomitant]
  5. LASIX [Concomitant]
  6. ALLOPURINOL [Concomitant]
  7. VALCYTE [Concomitant]
  8. LIPITOR [Concomitant]
  9. ROCALTROL [Concomitant]
  10. GLIPIZIDE [Concomitant]

REACTIONS (1)
  - LUNG SQUAMOUS CELL CARCINOMA STAGE UNSPECIFIED [None]
